FAERS Safety Report 24850846 (Version 1)
Quarter: 2025Q1

REPORT INFORMATION
  Report Type: Spontaneous
  Country: PL (occurrence: PL)
  Receive Date: 20250116
  Receipt Date: 20250116
  Transmission Date: 20250408
  Serious: Yes (Other)
  Sender: ALEXION PHARMACEUTICALS
  Company Number: PL-AstraZeneca-CH-00782572A

PATIENT

DRUGS (20)
  1. KOSELUGO [Suspect]
     Active Substance: SELUMETINIB
     Indication: Neurofibromatosis
     Dosage: 45 MILLIGRAM, BID
     Route: 048
  2. KOSELUGO [Suspect]
     Active Substance: SELUMETINIB
     Dosage: 45 MILLIGRAM, BID
  3. KOSELUGO [Suspect]
     Active Substance: SELUMETINIB
     Dosage: 45 MILLIGRAM, BID
     Route: 048
  4. KOSELUGO [Suspect]
     Active Substance: SELUMETINIB
     Dosage: 45 MILLIGRAM, BID
  5. KOSELUGO [Suspect]
     Active Substance: SELUMETINIB
     Dosage: 20 MILLIGRAM, BID
     Route: 048
  6. KOSELUGO [Suspect]
     Active Substance: SELUMETINIB
     Dosage: 20 MILLIGRAM, BID
     Route: 048
  7. KOSELUGO [Suspect]
     Active Substance: SELUMETINIB
     Dosage: 20 MILLIGRAM, BID
  8. KOSELUGO [Suspect]
     Active Substance: SELUMETINIB
     Dosage: 20 MILLIGRAM, BID
  9. KOSELUGO [Suspect]
     Active Substance: SELUMETINIB
     Dosage: 45 MILLIGRAM, BID
     Route: 048
  10. KOSELUGO [Suspect]
     Active Substance: SELUMETINIB
     Dosage: 45 MILLIGRAM, BID
  11. KOSELUGO [Suspect]
     Active Substance: SELUMETINIB
     Dosage: 45 MILLIGRAM, BID
  12. KOSELUGO [Suspect]
     Active Substance: SELUMETINIB
     Dosage: 45 MILLIGRAM, BID
     Route: 048
  13. KOSELUGO [Suspect]
     Active Substance: SELUMETINIB
     Route: 048
  14. KOSELUGO [Suspect]
     Active Substance: SELUMETINIB
  15. KOSELUGO [Suspect]
     Active Substance: SELUMETINIB
  16. KOSELUGO [Suspect]
     Active Substance: SELUMETINIB
     Route: 048
  17. KOSELUGO [Suspect]
     Active Substance: SELUMETINIB
  18. KOSELUGO [Suspect]
     Active Substance: SELUMETINIB
     Route: 048
  19. KOSELUGO [Suspect]
     Active Substance: SELUMETINIB
     Route: 048
  20. KOSELUGO [Suspect]
     Active Substance: SELUMETINIB

REACTIONS (5)
  - Rectal haemorrhage [Recovered/Resolved with Sequelae]
  - Asthenia [Recovered/Resolved with Sequelae]
  - Abdominal pain [Recovered/Resolved with Sequelae]
  - Acne [Recovered/Resolved with Sequelae]
  - Somnolence [Recovered/Resolved with Sequelae]
